FAERS Safety Report 4669899-8 (Version None)
Quarter: 2005Q2

REPORT INFORMATION
  Report Type: 
  Country: None (occurrence: None)
  Receive Date: 20050523
  Receipt Date: 20050502
  Transmission Date: 20051028
  Serious: Yes (Hospitalization, Other)
  Sender: FDA-Public Use
  Company Number: PHEH2005US05070

PATIENT
  Age: 69 Year
  Sex: Female
  Weight: 54 kg

DRUGS (18)
  1. VITAMIN B-12 [Concomitant]
  2. CITRACAL + D [Concomitant]
     Dosage: UNK, QD
  3. FISH OIL [Concomitant]
     Dosage: ONE TABLET QD
  4. ADVOCATE [Concomitant]
  5. PLAVIX [Concomitant]
  6. IMDUR [Concomitant]
     Dosage: 60 MG, QD
     Route: 048
  7. OSCAL 500-D [Concomitant]
     Dosage: UNK, BID
     Route: 048
  8. PREVACID [Concomitant]
     Dosage: 30 MG, BID
     Route: 048
  9. NITROGLICERINA [Concomitant]
     Route: 042
  10. DIOVAN [Suspect]
     Indication: HYPERTENSION
     Dosage: 160 MG, BID
     Route: 048
     Dates: start: 20040501, end: 20050401
  11. DIOVAN [Suspect]
     Dosage: 80 MG, UNK
     Route: 048
     Dates: start: 20030314
  12. LOPRESSOR [Concomitant]
     Dosage: 100 MG, BID
     Route: 048
  13. ASPIRIN [Concomitant]
     Dosage: 81 MG, QD
     Route: 048
  14. HUMALOG [Concomitant]
  15. NPH ILETIN I (BEEF-PORK) [Concomitant]
  16. VITAMINS [Concomitant]
  17. HYDROCHLOROTHIAZIDE [Concomitant]
     Dosage: 25 MG, QD
     Route: 048
  18. ISOSORBIDE [Concomitant]

REACTIONS (29)
  - ABDOMINAL PAIN UPPER [None]
  - ABDOMINAL TENDERNESS [None]
  - ANGINA PECTORIS [None]
  - ATRIAL FIBRILLATION [None]
  - BLOOD GLUCOSE INCREASED [None]
  - BLOOD PRESSURE INADEQUATELY CONTROLLED [None]
  - BUNDLE BRANCH BLOCK RIGHT [None]
  - CHEST DISCOMFORT [None]
  - CONSTIPATION [None]
  - CORONARY ARTERY DISEASE [None]
  - COUGH [None]
  - DIZZINESS [None]
  - DRUG INEFFECTIVE [None]
  - EATING DISORDER SYMPTOM [None]
  - HAEMOGLOBIN DECREASED [None]
  - HEADACHE [None]
  - HYDRONEPHROSIS [None]
  - HYPERTENSION [None]
  - IMPAIRED GASTRIC EMPTYING [None]
  - INSOMNIA [None]
  - NAUSEA [None]
  - NEPHROPATHY TOXIC [None]
  - PEPTIC ULCER [None]
  - RETCHING [None]
  - URETERAL STENT INSERTION [None]
  - URETERIC OBSTRUCTION [None]
  - URINE CYTOLOGY ABNORMAL [None]
  - VENTRICULAR FIBRILLATION [None]
  - WEIGHT DECREASED [None]
